FAERS Safety Report 9988352 (Version 8)
Quarter: 2014Q2

REPORT INFORMATION
  Report Type: Spontaneous
  Country: JP (occurrence: JP)
  Receive Date: 20140310
  Receipt Date: 20140624
  Transmission Date: 20141212
  Serious: Yes (Death, Hospitalization, Other)
  Sender: FDA-Public Use
  Company Number: JP-AMGEN-JPNSP2014015964

PATIENT
  Age: 67 Year
  Sex: Female
  Weight: 48 kg

DRUGS (15)
  1. ENBREL [Suspect]
     Indication: RHEUMATOID ARTHRITIS
     Dosage: 50 MG, WEEKLY
     Route: 058
     Dates: start: 20120417, end: 20140121
  2. TRANSAMIN [Suspect]
     Indication: HAEMOSTASIS
     Dosage: 500 MG, DAILY
     Route: 048
     Dates: start: 20140220, end: 20140221
  3. TRANSAMIN [Suspect]
     Dosage: 500 MG, DAILY
     Route: 048
     Dates: start: 20140224, end: 20140224
  4. PURSENNID                          /00142207/ [Concomitant]
     Dosage: UNK
  5. LASIX                              /00032601/ [Concomitant]
     Dosage: UNK
  6. OMEPRAL                            /00661201/ [Concomitant]
     Dosage: UNK
  7. AZULFIDINE [Concomitant]
     Dosage: UNK
  8. THYRADIN [Concomitant]
     Dosage: UNK
  9. NESINA [Concomitant]
     Dosage: UNK
  10. MYSLEE [Concomitant]
     Dosage: UNK
  11. PLETAAL [Concomitant]
     Dosage: UNK
  12. AVAPRO [Concomitant]
     Dosage: UNK
  13. AMLODIN [Concomitant]
     Dosage: UNK
  14. FEIBA [Concomitant]
     Indication: HAEMOSTASIS
     Dosage: 2500 IU, 1X/DAY
     Route: 041
     Dates: start: 20140226, end: 20140226
  15. FEIBA [Concomitant]
     Dosage: 2500 IU, 1X/DAY
     Route: 041
     Dates: start: 20140228, end: 20140228

REACTIONS (3)
  - Acquired haemophilia [Not Recovered/Not Resolved]
  - Cerebral infarction [Fatal]
  - Hyperglycaemia [Not Recovered/Not Resolved]
